FAERS Safety Report 5844834-5 (Version None)
Quarter: 2008Q3

REPORT INFORMATION
  Report Type: 
  Country: None (occurrence: None)
  Receive Date: 20080814
  Receipt Date: 20080811
  Transmission Date: 20090109
  Serious: Yes (Hospitalization)
  Sender: FDA-Public Use
  Company Number: JP-BRISTOL-MYERS SQUIBB COMPANY-14078836

PATIENT
  Age: 50 Year
  Sex: Female

DRUGS (5)
  1. BLEO [Suspect]
     Indication: HODGKIN'S DISEASE
     Dosage: GIVEN ON 03DEC07 12MG, 17DEC07 12MG, AND 28JAN08 15MG.
     Route: 041
     Dates: start: 20080128, end: 20080128
  2. EXAL [Suspect]
     Indication: HODGKIN'S DISEASE
     Dosage: 1 DOSAGE FORM = 7.2-9 MG
     Route: 041
     Dates: start: 20071203, end: 20080409
  3. ADRIAMYCIN PFS [Suspect]
     Indication: HODGKIN'S DISEASE
     Dosage: 1 DOSAGE FORM = 30.4-38 MG
     Route: 041
     Dates: start: 20071203, end: 20080409
  4. DACARBAZINE [Suspect]
     Indication: HODGKIN'S DISEASE
     Dosage: ALSO GIVEN ON 03DEC07, 17DEC07.
     Route: 041
     Dates: start: 20080128
  5. PEPLEO [Suspect]
     Indication: HODGKIN'S DISEASE

REACTIONS (2)
  - PLATELET COUNT DECREASED [None]
  - PYREXIA [None]
